FAERS Safety Report 17103717 (Version 2)
Quarter: 2020Q1

REPORT INFORMATION
  Report Type: Report from Study
  Country: CN (occurrence: CN)
  Receive Date: 20191203
  Receipt Date: 20200318
  Transmission Date: 20200409
  Serious: Yes (Death)
  Sender: FDA-Public Use
  Company Number: CN-ROCHE-2489330

PATIENT
  Age: 69 Year
  Sex: Male
  Weight: 59 kg

DRUGS (7)
  1. AMBROXOL [Concomitant]
     Active Substance: AMBROXOL
     Route: 065
     Dates: start: 201911, end: 20191128
  2. LEVOFLOXACIN;SODIUM CHLORIDE [Concomitant]
     Route: 065
     Dates: start: 20191029, end: 20191128
  3. GLUTATHIONE REDUCED [Concomitant]
     Route: 065
     Dates: start: 201911, end: 20191128
  4. PIPERACILLIN SODIUM;TAZOBACTAM SODIUM [Concomitant]
     Active Substance: PIPERACILLIN SODIUM\TAZOBACTAM SODIUM
     Route: 065
     Dates: start: 20191029, end: 20191128
  5. AZITHROMYCIN ANHYDROUS. [Concomitant]
     Active Substance: AZITHROMYCIN ANHYDROUS
     Route: 065
     Dates: start: 201911, end: 20191128
  6. ATEZOLIZUMAB. [Suspect]
     Active Substance: ATEZOLIZUMAB
     Indication: NON-SMALL CELL LUNG CANCER
     Dosage: THIS WAS ALSO THE MOST RECENT DOSE OF ATEZOLIZUMAB PRIOR TO EVENT ONSET
     Route: 042
     Dates: start: 20190822
  7. FAT EMULSION NOS [Concomitant]
     Active Substance: EGG PHOSPHOLIPIDS\SAFFLOWER OIL\SOYBEAN OIL
     Route: 065
     Dates: start: 20191028, end: 201911

REACTIONS (2)
  - Pneumonia [Fatal]
  - Disease progression [Fatal]

NARRATIVE: CASE EVENT DATE: 20191128
